FAERS Safety Report 6071413-X (Version None)
Quarter: 2009Q1

REPORT INFORMATION
  Report Type: 
  Country: None (occurrence: None)
  Receive Date: 20090204
  Receipt Date: 20090123
  Transmission Date: 20090719
  Serious: Yes (Other)
  Sender: FDA-Public Use
  Company Number: 1000003636

PATIENT
  Age: 56 Year
  Sex: Female
  Weight: 78.4723 kg

DRUGS (12)
  1. SAVELLA [Suspect]
     Indication: FIBROMYALGIA
     Dosage: 75 MILLIGRAM (75 MG),ORAL
     Route: 048
     Dates: start: 20061219
  2. FLONASE [Concomitant]
  3. MIRALAX [Concomitant]
  4. ORPHENADRINE CITRATE [Concomitant]
  5. XANAX [Concomitant]
  6. TRICOR [Concomitant]
  7. MULTI-VITAMIN [Concomitant]
  8. RESTASIS [Concomitant]
  9. LOVAZA [Concomitant]
  10. VITAMIN B COMPLEX CAP [Concomitant]
  11. EXCEDRIN (MIGRAINE) [Concomitant]
  12. AMLODIPINE [Concomitant]

REACTIONS (1)
  - BREAST CANCER IN SITU [None]
